FAERS Safety Report 8564136-6 (Version None)
Quarter: 2012Q3

REPORT INFORMATION
  Report Type: 
  Country: None (occurrence: None)
  Receive Date: 20120723
  Receipt Date: 20120716
  Transmission Date: 20120928
  Serious: Yes (Hospitalization)
  Sender: FDA-Public Use
  Company Number: CA12-0090

PATIENT
  Age: 58 Year
  Sex: Female

DRUGS (1)
  1. ENOXAPARIN SODIUM [Suspect]
     Indication: THROMBOSIS
     Dosage: 80MG/0.8ML, TWO TIMES A DAY, INJECTION IN STOMACH
     Dates: start: 20120713, end: 20120721

REACTIONS (3)
  - INJURY ASSOCIATED WITH DEVICE [None]
  - NEEDLE ISSUE [None]
  - FOREIGN BODY [None]
